FAERS Safety Report 4330066-9 (Version None)
Quarter: 2004Q1

REPORT INFORMATION
  Report Type: 
  Country: None (occurrence: None)
  Receive Date: 20040329
  Receipt Date: 20040227
  Transmission Date: 20041129
  Serious: No
  Sender: FDA-Public Use
  Company Number: 04P-163-0251747-00

PATIENT
  Age: 54 Year
  Sex: Female
  Weight: 102.0593 kg

DRUGS (8)
  1. HUMIRA [Suspect]
     Indication: RHEUMATOID ARTHRITIS
     Dosage: 40 MG, 1 IN 2 WK, SUBCUTANEOUS
     Route: 058
     Dates: start: 20040105
  2. METHYLPREDNISOLONE [Concomitant]
  3. LEVOTHYROXINE SODIUM [Concomitant]
  4. INSULIN LISPRO [Concomitant]
  5. PIOGLITAZONE HCL [Concomitant]
  6. LOSARTAN POTASSIUM [Concomitant]
  7. OXYCODONE HCL [Concomitant]
  8. WARFARIN SODIUM [Concomitant]

REACTIONS (3)
  - NAUSEA [None]
  - OEDEMA PERIPHERAL [None]
  - RHEUMATOID ARTHRITIS [None]
